FAERS Safety Report 21200691 (Version 1)
Quarter: 2022Q3

REPORT INFORMATION
  Report Type: Spontaneous
  Country: CN (occurrence: None)
  Receive Date: 20220811
  Receipt Date: 20220811
  Transmission Date: 20221026
  Serious: Yes (Hospitalization)
  Sender: FDA-Public Use
  Company Number: CN-ROCHE-3152590

PATIENT
  Age: 47 Year
  Sex: Female

DRUGS (7)
  1. DOCETAXEL [Suspect]
     Active Substance: DOCETAXEL
     Indication: Breast cancer
     Route: 041
     Dates: start: 20210804
  2. PERTUZUMAB [Suspect]
     Active Substance: PERTUZUMAB
     Indication: Breast cancer
     Dosage: FOLLOWED BY 420 MG/TIME
     Route: 041
     Dates: start: 20210804
  3. PERTUZUMAB [Suspect]
     Active Substance: PERTUZUMAB
     Dosage: FOLLOWED BY 420 MG/TIME
     Route: 041
  4. TRASTUZUMAB [Suspect]
     Active Substance: TRASTUZUMAB
     Indication: Breast cancer
     Dosage: FOLLOWED BY 300 MG/TIME
     Route: 041
     Dates: start: 20210804
  5. TRASTUZUMAB [Suspect]
     Active Substance: TRASTUZUMAB
     Dosage: FOLLOWED BY 300 MG/TIME
     Route: 041
  6. TRIPTORELIN [Concomitant]
     Active Substance: TRIPTORELIN
     Dosage: MORNING
  7. ANASTROZOLE [Concomitant]
     Active Substance: ANASTROZOLE

REACTIONS (1)
  - Paronychia [Unknown]

NARRATIVE: CASE EVENT DATE: 20220413
